FAERS Safety Report 4779001-X (Version None)
Quarter: 2005Q3

REPORT INFORMATION
  Report Type: 
  Country: None (occurrence: None)
  Receive Date: 20050923
  Receipt Date: 20050913
  Transmission Date: 20060218
  Serious: Yes (Disabling)
  Sender: FDA-Public Use
  Company Number: 2005117720

PATIENT
  Age: 72 Year
  Sex: Female

DRUGS (2)
  1. LIPITOR [Suspect]
     Indication: BLOOD CHOLESTEROL INCREASED
     Dosage: 10 MG (10 MG, 1 IN 1 D) ORAL
     Route: 048
  2. INDAPAMIDE [Concomitant]

REACTIONS (2)
  - JOINT RANGE OF MOTION DECREASED [None]
  - POLYMYALGIA RHEUMATICA [None]
